FAERS Safety Report 9308469 (Version 2)
Quarter: 2013Q2

REPORT INFORMATION
  Report Type: Spontaneous
  Country: PL (occurrence: PL)
  Receive Date: 20130524
  Receipt Date: 20130610
  Transmission Date: 20140414
  Serious: Yes (Life-Threatening, Hospitalization, Disabling, Other)
  Sender: FDA-Public Use
  Company Number: PL-PFIZER INC-2013154963

PATIENT
  Age: 3 Year
  Sex: Male
  Weight: 17 kg

DRUGS (3)
  1. BENEFIX [Suspect]
     Indication: HAEMOPHILIA
     Dosage: 500 IU, AS NEEDED/ON DEMAND
     Route: 042
     Dates: start: 201105, end: 201109
  2. BENEFIX [Suspect]
     Dosage: 500 IU, 2X/WEEK
     Route: 042
     Dates: start: 201109, end: 20120528
  3. BENEFIX [Suspect]
     Dosage: 750 IU, 2X/WEEK
     Route: 042
     Dates: start: 20120528, end: 201305

REACTIONS (4)
  - Factor IX inhibition [Not Recovered/Not Resolved]
  - Haemarthrosis [Unknown]
  - Haemorrhage [Unknown]
  - Off label use [Unknown]
